FAERS Safety Report 6909596-9 (Version None)
Quarter: 2010Q3

REPORT INFORMATION
  Report Type: 
  Country: None (occurrence: None)
  Receive Date: 20100805
  Receipt Date: 20100727
  Transmission Date: 20110219
  Serious: Yes (Hospitalization, Other)
  Sender: FDA-Public Use
  Company Number: US-ELI_LILLY_AND_COMPANY-US201006002604

PATIENT
  Age: 66 Year
  Sex: Male
  Weight: 98.413 kg

DRUGS (3)
  1. GEMZAR [Suspect]
     Indication: PANCREATIC CARCINOMA
     Dosage: 2240 MG, WEEKLY FOR 3 WKS THEN OFF 1 WK
     Dates: start: 20100201
  2. GEMZAR [Suspect]
     Dosage: 1680 MG, UNK
  3. MUSCLE RELAXANTS [Concomitant]

REACTIONS (8)
  - BACK PAIN [None]
  - INFLUENZA [None]
  - LUNG INFILTRATION [None]
  - MUSCULOSKELETAL STIFFNESS [None]
  - NEUTROPHIL COUNT ABNORMAL [None]
  - PULMONARY TOXICITY [None]
  - RESPIRATORY FAILURE [None]
  - SKIN DISCOLOURATION [None]
